FAERS Safety Report 23265888 (Version 1)
Quarter: 2023Q4

REPORT INFORMATION
  Report Type: Spontaneous
  Country: ES (occurrence: ES)
  Receive Date: 20231206
  Receipt Date: 20231206
  Transmission Date: 20240110
  Serious: Yes (Other)
  Sender: FDA-Public Use
  Company Number: ES-BAXTER-2023BAX036224

PATIENT
  Age: 44 Year
  Sex: Female

DRUGS (16)
  1. EPIRUBICIN [Suspect]
     Active Substance: EPIRUBICIN
     Indication: Adjuvant therapy
     Dosage: UNK, AS A PART OF FEC REGIMEN X 6 CYCLES, FIRST CYCLE IN DEC-2008 AND LAST IN APR-2009
     Route: 065
  2. EPIRUBICIN [Suspect]
     Active Substance: EPIRUBICIN
     Indication: Tumour invasion
  3. EPIRUBICIN [Suspect]
     Active Substance: EPIRUBICIN
     Indication: Invasive ductal breast carcinoma
  4. FULVESTRANT [Suspect]
     Active Substance: FULVESTRANT
     Indication: Tumour invasion
     Dosage: UNK, (START DATE: APR-2023), EVEROLIMUS (NON-MUTATED PI3K)
     Route: 065
  5. FULVESTRANT [Suspect]
     Active Substance: FULVESTRANT
     Indication: Invasive ductal breast carcinoma
  6. CYCLOPHOSPHAMIDE [Suspect]
     Active Substance: CYCLOPHOSPHAMIDE
     Indication: Tumour invasion
     Dosage: UNK, AS A PART OF FEC REGIMEN X 6 CYCLES, FIRST CYCLE IN DEC-2008 AND LAST IN APR-2009
     Route: 065
  7. CYCLOPHOSPHAMIDE [Suspect]
     Active Substance: CYCLOPHOSPHAMIDE
     Indication: Chemotherapy
  8. CYCLOPHOSPHAMIDE [Suspect]
     Active Substance: CYCLOPHOSPHAMIDE
     Indication: Invasive ductal breast carcinoma
  9. FLUOROURACIL [Suspect]
     Active Substance: FLUOROURACIL
     Indication: Tumour invasion
     Dosage: UNK, AS A PART OF FEC REGIMEN X 6 CYCLES, FIRST CYCLE IN DEC-2008 AND LAST IN APR-2009
     Route: 065
  10. FLUOROURACIL [Suspect]
     Active Substance: FLUOROURACIL
     Indication: Chemotherapy
  11. FLUOROURACIL [Suspect]
     Active Substance: FLUOROURACIL
     Indication: Invasive ductal breast carcinoma
  12. PALBOCICLIB [Suspect]
     Active Substance: PALBOCICLIB
     Indication: Invasive ductal breast carcinoma
     Dosage: UNK, (START DATE: JAN-2019)
     Route: 065
  13. LETROZOLE [Suspect]
     Active Substance: LETROZOLE
     Indication: Tumour invasion
  14. TAMOXIFEN [Suspect]
     Active Substance: TAMOXIFEN
     Indication: Invasive ductal breast carcinoma
     Dosage: UNK, X 7.5 YEARS, 1ST QT CYCLE, ENDS IN DEC-2016
     Route: 065
  15. TAMOXIFEN [Suspect]
     Active Substance: TAMOXIFEN
     Indication: Adjuvant therapy
  16. TAMOXIFEN [Suspect]
     Active Substance: TAMOXIFEN
     Indication: Tumour invasion

REACTIONS (13)
  - Disease progression [Unknown]
  - Metastases to bone [Unknown]
  - Neutropenia [Unknown]
  - Mucosal dryness [Unknown]
  - Hot flush [Unknown]
  - Hepatic steatosis [Unknown]
  - Mucosal inflammation [Unknown]
  - Osteolysis [Unknown]
  - Arthralgia [Unknown]
  - Asthenia [Unknown]
  - Pain [Unknown]
  - Amenorrhoea [Unknown]
  - Anaemia [Unknown]
